FAERS Safety Report 18764152 (Version 3)
Quarter: 2021Q1

REPORT INFORMATION
  Report Type: Report from Study
  Country: CO (occurrence: CO)
  Receive Date: 20210120
  Receipt Date: 20210310
  Transmission Date: 20210419
  Serious: Yes (Hospitalization)
  Sender: FDA-Public Use
  Company Number: NVSC2021CO008290

PATIENT
  Sex: Female
  Weight: 34 kg

DRUGS (4)
  1. ILARIS [Suspect]
     Active Substance: CANAKINUMAB
     Dosage: UNK
     Route: 065
     Dates: start: 20210124
  2. ILARIS [Suspect]
     Active Substance: CANAKINUMAB
     Indication: STILL^S DISEASE
     Dosage: 150 MG
     Route: 058
     Dates: start: 20201221
  3. PREDNISOLONE. [Concomitant]
     Active Substance: PREDNISOLONE
     Indication: STILL^S DISEASE
     Dosage: 15 MG, QD (STARTED 2 YEARS AGO)
     Route: 048
  4. METHYLPREDNISOLONE. [Suspect]
     Active Substance: METHYLPREDNISOLONE
     Indication: JUVENILE IDIOPATHIC ARTHRITIS
     Route: 065

REACTIONS (7)
  - Blood pressure decreased [Not Recovered/Not Resolved]
  - Decreased appetite [Recovered/Resolved]
  - Brain injury [Unknown]
  - Weight decreased [Not Recovered/Not Resolved]
  - Pulmonary oedema [Unknown]
  - Seizure [Not Recovered/Not Resolved]
  - Fluid retention [Unknown]
